FAERS Safety Report 6012152-0 (Version None)
Quarter: 2008Q4

REPORT INFORMATION
  Report Type: 
  Country: None (occurrence: None)
  Receive Date: 20081216
  Receipt Date: 20080702
  Transmission Date: 20090506
  Serious: Yes (Other)
  Sender: FDA-Public Use
  Company Number: US-WYE-H04825108

PATIENT
  Age: 47 Year
  Sex: Female
  Weight: 122.58 kg

DRUGS (3)
  1. EFFEXOR XR [Suspect]
     Indication: DEPRESSION
     Dosage: SEE IMAGE
     Route: 048
     Dates: start: 20050101, end: 20060101
  2. EFFEXOR XR [Suspect]
     Indication: DEPRESSION
     Dosage: SEE IMAGE
     Route: 048
     Dates: start: 20060101
  3. EFFEXOR XR [Suspect]
     Indication: DEPRESSION
     Dosage: SEE IMAGE
     Route: 048
     Dates: start: 20080601

REACTIONS (8)
  - BLOOD PRESSURE INCREASED [None]
  - CRYING [None]
  - DRUG WITHDRAWAL SYNDROME [None]
  - MALAISE [None]
  - PAIN [None]
  - PARAESTHESIA [None]
  - SALIVARY HYPERSECRETION [None]
  - TINNITUS [None]
